FAERS Safety Report 5899886-3 (Version None)
Quarter: 2008Q3

REPORT INFORMATION
  Report Type: 
  Country: None (occurrence: None)
  Receive Date: 20080925
  Receipt Date: 20080925
  Transmission Date: 20090109
  Serious: Yes (Life-Threatening, Hospitalization)
  Sender: FDA-Public Use
  Company Number: None

PATIENT
  Age: 46 Year
  Sex: Female
  Weight: 66.2252 kg

DRUGS (1)
  1. XOLAIR [Suspect]
     Indication: ASTHMA
     Dosage: 150 MG SQ
     Route: 058
     Dates: start: 20080711, end: 20080919

REACTIONS (7)
  - ANAPHYLACTIC REACTION [None]
  - CHEST DISCOMFORT [None]
  - COUGH [None]
  - DYSPNOEA [None]
  - OROPHARYNGEAL PAIN [None]
  - PRURITUS GENERALISED [None]
  - THROAT TIGHTNESS [None]
